FAERS Safety Report 9450409 (Version 1)
Quarter: 2013Q3

REPORT INFORMATION
  Report Type: Spontaneous
  Country: US (occurrence: US)
  Receive Date: 20130809
  Receipt Date: 20130809
  Transmission Date: 20140515
  Serious: Yes (Other)
  Sender: FDA-Public Use
  Company Number: US-PFIZER INC-2013230210

PATIENT
  Sex: Female

DRUGS (1)
  1. CHANTIX [Suspect]
     Dosage: UNK, SINGLE
     Dates: start: 20130729, end: 20130729

REACTIONS (5)
  - Balance disorder [Unknown]
  - Dysstasia [Unknown]
  - Disturbance in attention [Unknown]
  - Dizziness [Unknown]
  - Feeling abnormal [Unknown]
